FAERS Safety Report 10733181 (Version 5)
Quarter: 2015Q3

REPORT INFORMATION
  Report Type: Report from Study
  Country: JP (occurrence: JP)
  Receive Date: 20150123
  Receipt Date: 20150911
  Transmission Date: 20151125
  Serious: Yes (Death, Life-Threatening, Hospitalization, Other)
  Sender: FDA-Public Use
  Company Number: JP-BRISTOL-MYERS SQUIBB COMPANY-21679089

PATIENT
  Age: 63 Year
  Sex: Male

DRUGS (3)
  1. NIVOLUMAB [Suspect]
     Active Substance: NIVOLUMAB
     Dosage: 129 MG, QCYCLE
     Route: 041
     Dates: start: 20141126, end: 20141126
  2. NIVOLUMAB [Suspect]
     Active Substance: NIVOLUMAB
     Dosage: 129 MG, QCYCLE
     Route: 041
     Dates: start: 20141105, end: 20141105
  3. NIVOLUMAB [Suspect]
     Active Substance: NIVOLUMAB
     Indication: MALIGNANT MELANOMA
     Dosage: 129 MG, QCYCLE
     Route: 041
     Dates: start: 20141017, end: 20141017

REACTIONS (7)
  - Tumour lysis syndrome [Fatal]
  - Hepatic function abnormal [Fatal]
  - Multi-organ failure [Fatal]
  - Malignant neoplasm progression [Fatal]
  - Acute kidney injury [Recovered/Resolved]
  - Hypoglycaemia [Recovered/Resolved]
  - Tri-iodothyronine free decreased [Unknown]

NARRATIVE: CASE EVENT DATE: 20141126
